FAERS Safety Report 9771435 (Version 1)
Quarter: 2013Q4

REPORT INFORMATION
  Report Type: Spontaneous
  Country: US (occurrence: US)
  Receive Date: 20131219
  Receipt Date: 20131219
  Transmission Date: 20140711
  Serious: No
  Sender: FDA-Public Use
  Company Number: US-009507513-1312USA007221

PATIENT
  Age: 40 Year
  Sex: Female

DRUGS (1)
  1. NUVARING [Suspect]
     Dosage: 0.15/.12
     Route: 067

REACTIONS (3)
  - Abdominal distension [Unknown]
  - Weight increased [Unknown]
  - Alopecia [Unknown]
